FAERS Safety Report 24953303 (Version 1)
Quarter: 2025Q1

REPORT INFORMATION
  Report Type: Spontaneous
  Country: FR (occurrence: FR)
  Receive Date: 20250211
  Receipt Date: 20250211
  Transmission Date: 20250409
  Serious: Yes (Hospitalization, Disabling)
  Sender: CHEPLAPHARM
  Company Number: None

PATIENT
  Age: 61 Year
  Sex: Female
  Weight: 77.8 kg

DRUGS (5)
  1. TRETINOIN [Suspect]
     Active Substance: TRETINOIN
     Indication: Acute promyelocytic leukaemia
     Route: 048
     Dates: start: 20241022, end: 20241119
  2. CLONAZEPAM [Suspect]
     Active Substance: CLONAZEPAM
     Indication: Seizure
     Dates: start: 20241122
  3. ARSENIC TRIOXIDE [Suspect]
     Active Substance: ARSENIC TRIOXIDE
     Indication: Acute promyelocytic leukaemia
     Dosage: DILUTABLE SOLUTION FOR INFUSION ?DAILY DOSE: 0.15 MILLIGRAM/KG
     Route: 042
     Dates: start: 20241022, end: 20241119
  4. KEPPRA [Suspect]
     Active Substance: LEVETIRACETAM
     Indication: Seizure
     Dates: start: 20241122
  5. KEPPRA [Suspect]
     Active Substance: LEVETIRACETAM
     Indication: Seizure
     Dates: start: 20241207

REACTIONS (11)
  - Encephalopathy [Recovering/Resolving]
  - Vomiting [Recovered/Resolved]
  - Nausea [Unknown]
  - Diarrhoea [Recovering/Resolving]
  - Hypocalcaemia [Unknown]
  - Hypokalaemia [Unknown]
  - Asthenia [Unknown]
  - Decreased appetite [Unknown]
  - Malnutrition [Unknown]
  - Hypoalbuminaemia [Unknown]
  - Vitamin B1 deficiency [Unknown]

NARRATIVE: CASE EVENT DATE: 20241028
